FAERS Safety Report 4396809-3 (Version None)
Quarter: 2004Q3

REPORT INFORMATION
  Report Type: 
  Country: None (occurrence: None)
  Receive Date: 20040709
  Receipt Date: 20040629
  Transmission Date: 20050211
  Serious: Yes (Hospitalization)
  Sender: FDA-Public Use
  Company Number: 2004216000JP

PATIENT
  Age: 40 Year
  Sex: Female

DRUGS (9)
  1. HALCION [Suspect]
     Dosage: ORAL
     Route: 048
     Dates: end: 19980528
  2. ALPRAZOLAM [Suspect]
     Dosage: ORAL
     Route: 048
     Dates: end: 19980528
  3. FLUNITRAZEPAM (FLUNTIRAZEPAM) [Suspect]
     Dosage: ORAL
     Route: 048
     Dates: end: 19980528
  4. CHLORPROMAZINE HCL [Suspect]
     Dosage: ORAL
     Route: 048
     Dates: end: 29980528
  5. AMITRIPTYLINE HYDROCHLORIDE [Suspect]
     Dosage: ORAL
     Route: 048
     Dates: end: 19980528
  6. EVAMYL (LORMETAZEPAM) [Suspect]
     Dosage: ORAL
     Route: 048
     Dates: end: 19980528
  7. DESYREL [Concomitant]
  8. DEPAS (ETIZOLAM) [Concomitant]
  9. BENOZIL (FLURAZEPAM HYDROCHLORIDE) [Concomitant]

REACTIONS (6)
  - DEPRESSED LEVEL OF CONSCIOUSNESS [None]
  - DRUG TOXICITY [None]
  - MULTIPLE DRUG OVERDOSE [None]
  - ROAD TRAFFIC ACCIDENT [None]
  - SUICIDE ATTEMPT [None]
  - THERMAL BURN [None]
